FAERS Safety Report 4314714-5 (Version None)
Quarter: 2004Q1

REPORT INFORMATION
  Report Type: 
  Country: None (occurrence: None)
  Receive Date: 20040308
  Receipt Date: 20040219
  Transmission Date: 20041129
  Serious: Yes (Other)
  Sender: FDA-Public Use
  Company Number: 2004-DE-00840GD

PATIENT
  Sex: Male

DRUGS (3)
  1. CYCLOPHOSPHAMIDE [Suspect]
     Indication: BONE MARROW CONDITIONING REGIMEN
     Dosage: 60 MG/KG X 2
  2. FLUDARABINE PHOSPHATE [Suspect]
     Indication: BONE MARROW CONDITIONING REGIMEN
     Dosage: 40 MG/M2 X 4
  3. ATG FRESENIUS (ANTITHYMOCYTE IMMUNOGLOBULIN) [Suspect]
     Indication: BONE MARROW CONDITIONING REGIMEN
     Dosage: 20 MG/KG X 3

REACTIONS (2)
  - GRAFT VERSUS HOST DISEASE [None]
  - TRANSPLANT REJECTION [None]
